FAERS Safety Report 4294529-7 (Version None)
Quarter: 2004Q1

REPORT INFORMATION
  Report Type: 
  Country: None (occurrence: None)
  Receive Date: 20040211
  Receipt Date: 20040122
  Transmission Date: 20041129
  Serious: Yes (Other)
  Sender: FDA-Public Use
  Company Number: B0321299A

PATIENT
  Sex: Female

DRUGS (2)
  1. ALBENZA [Suspect]
     Indication: FILARIASIS LYMPHATIC
  2. IVERMECTIN (IVERMECTIN) [Suspect]
     Indication: FILARIASIS LYMPHATIC

REACTIONS (4)
  - ABORTION SPONTANEOUS [None]
  - COMPLICATIONS OF MATERNAL EXPOSURE TO THERAPEUTIC DRUGS [None]
  - MATERNAL DRUGS AFFECTING FOETUS [None]
  - PREGNANCY [None]
